FAERS Safety Report 7997039-6 (Version None)
Quarter: 2011Q4

REPORT INFORMATION
  Report Type: 
  Country: None (occurrence: None)
  Receive Date: 20111221
  Receipt Date: 20111215
  Transmission Date: 20120403
  Serious: Yes (Hospitalization)
  Sender: FDA-Public Use
  Company Number: GXKR2011DE003613

PATIENT

DRUGS (3)
  1. AMBROXOL [Concomitant]
     Indication: BRONCHITIS
     Dosage: 3X60MG
     Route: 048
     Dates: start: 20110314
  2. METOPROLOL TARTRATE [Concomitant]
     Indication: HYPERTENSION
     Dosage: 1X1
     Route: 048
  3. CLARITHROMYCIN [Suspect]
     Indication: BRONCHITIS
     Dosage: DAILY DOSE: 500 MG MILLGRAM(S) EVERY DAYS
     Route: 048
     Dates: start: 20110314, end: 20110324

REACTIONS (1)
  - DIPLOPIA [None]
